FAERS Safety Report 20943124 (Version 4)
Quarter: 2022Q3

REPORT INFORMATION
  Report Type: Report from Study
  Country: IE (occurrence: None)
  Receive Date: 20220610
  Receipt Date: 20220822
  Transmission Date: 20221026
  Serious: Yes (Other)
  Sender: FDA-Public Use
  Company Number: IE-Merck Healthcare KGaA-9328807

PATIENT
  Sex: Female

DRUGS (1)
  1. SAIZEN [Suspect]
     Active Substance: SOMATROPIN
     Indication: Growth hormone deficiency
     Route: 058
     Dates: start: 20190921

REACTIONS (5)
  - Pituitary tumour [Unknown]
  - Skin atrophy [Unknown]
  - Nausea [Unknown]
  - Treatment noncompliance [Unknown]
  - Intentional product use issue [Unknown]
